FAERS Safety Report 8462311-2 (Version None)
Quarter: 2012Q2

REPORT INFORMATION
  Report Type: 
  Country: None (occurrence: None)
  Receive Date: 20120625
  Receipt Date: 20120618
  Transmission Date: 20120825
  Serious: Yes (Other)
  Sender: FDA-Public Use
  Company Number: DZ-ABBOTT-12P-160-0936386-00

PATIENT
  Sex: Female

DRUGS (2)
  1. HUMIRA [Suspect]
     Indication: ANKYLOSING SPONDYLITIS
     Route: 058
     Dates: start: 20110508, end: 20120321
  2. HUMIRA [Suspect]
     Indication: CROHN'S DISEASE

REACTIONS (1)
  - ABORTION SPONTANEOUS [None]
